FAERS Safety Report 8394563-1 (Version None)
Quarter: 2012Q2

REPORT INFORMATION
  Report Type: 
  Country: None (occurrence: None)
  Receive Date: 20120530
  Receipt Date: 20120528
  Transmission Date: 20120825
  Serious: Yes (Death)
  Sender: FDA-Public Use
  Company Number: PHFR2012GB003018

PATIENT
  Age: 47 Year
  Sex: Male

DRUGS (2)
  1. REMICADE [Interacting]
     Indication: CROHN'S DISEASE
  2. ZOMETA [Suspect]
     Indication: CROHN'S DISEASE
     Route: 042

REACTIONS (2)
  - DRUG INTERACTION [None]
  - IMMUNOSUPPRESSION [None]
